FAERS Safety Report 9073781 (Version 1)
Quarter: 2013Q1

REPORT INFORMATION
  Report Type: Spontaneous
  Country: US (occurrence: US)
  Receive Date: 20130129
  Receipt Date: 20130129
  Transmission Date: 20140127
  Serious: Yes (Other)
  Sender: FDA-Public Use
  Company Number: US-ABBOTT-12P-163-0901142-00

PATIENT
  Age: 55 None
  Sex: Female
  Weight: 67 kg

DRUGS (11)
  1. HUMIRA 40 MG/0.8 ML PEN [Suspect]
     Indication: PSORIASIS
     Route: 058
     Dates: start: 200907, end: 201201
  2. NORETHINDRONE [Suspect]
     Indication: PRODUCT USED FOR UNKNOWN INDICATION
  3. CALTRATE [Concomitant]
     Indication: MINERAL SUPPLEMENTATION
  4. FISH OIL [Concomitant]
     Indication: SUPPLEMENTATION THERAPY
  5. MULTIVITAMIN [Concomitant]
     Indication: VITAMIN SUPPLEMENTATION
     Dates: start: 20100330
  6. HYDROCORTISONE [Concomitant]
     Indication: PSORIASIS
     Route: 061
  7. BETAMETHASONE [Concomitant]
     Indication: PSORIASIS
     Route: 061
  8. CLOBETASOL [Concomitant]
     Indication: PSORIASIS
     Route: 061
  9. TYLENOL [Concomitant]
     Indication: PRODUCT USED FOR UNKNOWN INDICATION
  10. ESTROGEN SUPPLEMENT [Concomitant]
     Indication: HORMONE REPLACEMENT THERAPY
  11. CELEBREX [Concomitant]
     Indication: PRODUCT USED FOR UNKNOWN INDICATION
     Dates: start: 20110930, end: 20111221

REACTIONS (1)
  - Breast cancer [Recovered/Resolved]
